FAERS Safety Report 7153689 (Version 4)
Quarter: 2012Q4

REPORT INFORMATION
  Report Type: Report from Study
  Country: CA (occurrence: CA)
  Receive Date: 20091020
  Receipt Date: 20121108
  Transmission Date: 20130627
  Serious: Yes (Death, Hospitalization, Other)
  Sender: FDA-Public Use
  Company Number: PHHY2009CA44661

PATIENT
  Age: 90 Year
  Sex: Male
  Weight: 63.49 kg

DRUGS (2)
  1. EXELON [Suspect]
     Indication: DEMENTIA ALZHEIMER^S TYPE
     Dosage: 9.5 mg (10 cm2), daily
     Route: 062
     Dates: start: 20090120
  2. EXELON [Suspect]
     Dosage: 4.6 mg (5 cm2), daily
     Route: 062

REACTIONS (3)
  - Death [Fatal]
  - Fall [Unknown]
  - Mental disorder [Unknown]
